FAERS Safety Report 4721759-X (Version None)
Quarter: 2005Q3

REPORT INFORMATION
  Report Type: 
  Country: None (occurrence: None)
  Receive Date: 20050721
  Receipt Date: 20050401
  Transmission Date: 20060218
  Serious: No
  Sender: FDA-Public Use
  Company Number: US-BRISTOL-MYERS SQUIBB COMPANY-12917928

PATIENT
  Age: 77 Year
  Sex: Female
  Weight: 78 kg

DRUGS (2)
  1. COUMADIN [Suspect]
     Indication: COLON OPERATION
     Route: 048
     Dates: start: 20050325
  2. COUMADIN [Suspect]
     Indication: ILEECTOMY
     Route: 048
     Dates: start: 20050325

REACTIONS (1)
  - INTERNATIONAL NORMALISED RATIO ABNORMAL [None]
